FAERS Safety Report 20900197 (Version 1)
Quarter: 2022Q2

REPORT INFORMATION
  Report Type: Spontaneous
  Country: NL (occurrence: NL)
  Receive Date: 20220601
  Receipt Date: 20220601
  Transmission Date: 20220720
  Serious: Yes (Hospitalization, Other)
  Sender: FDA-Public Use
  Company Number: NL-CELLTRION INC.-2021NL019317

PATIENT

DRUGS (3)
  1. INFLIXIMAB [Suspect]
     Active Substance: INFLIXIMAB
     Indication: Inflammatory bowel disease
     Dosage: UNK
     Dates: start: 201508, end: 201807
  2. IFOSFAMIDE [Suspect]
     Active Substance: IFOSFAMIDE
     Indication: Inflammatory bowel disease
  3. INFLIXIMAB [Suspect]
     Active Substance: INFLIXIMAB
     Indication: Inflammatory bowel disease

REACTIONS (9)
  - Condition aggravated [Recovered/Resolved]
  - Malignant melanoma [Unknown]
  - Musculoskeletal pain [Recovered/Resolved]
  - Adverse event [Unknown]
  - Drug specific antibody [Unknown]
  - Eczema [Recovered/Resolved]
  - Headache [Recovered/Resolved]
  - Infusion related reaction [Unknown]
  - Therapy cessation [Unknown]
